FAERS Safety Report 5824009-6 (Version None)
Quarter: 2008Q3

REPORT INFORMATION
  Report Type: 
  Country: None (occurrence: None)
  Receive Date: 20080728
  Receipt Date: 20080717
  Transmission Date: 20090109
  Serious: Yes (Other)
  Sender: FDA-Public Use
  Company Number: DE-JNJFOC-20080704381

PATIENT
  Sex: Female
  Weight: 90 kg

DRUGS (2)
  1. RISPERDAL [Suspect]
     Indication: SUICIDE ATTEMPT
     Route: 048
  2. ZOPICLON [Suspect]
     Indication: SUICIDE ATTEMPT
     Route: 048

REACTIONS (2)
  - FATIGUE [None]
  - INTENTIONAL OVERDOSE [None]
